FAERS Safety Report 21561007 (Version 1)
Quarter: 2022Q4

REPORT INFORMATION
  Report Type: Spontaneous
  Country: PR (occurrence: PR)
  Receive Date: 20221107
  Receipt Date: 20221107
  Transmission Date: 20230113
  Serious: No
  Sender: FDA-Public Use
  Company Number: PR-ABBVIE-4138099

PATIENT
  Age: 32 Year
  Sex: Female

DRUGS (1)
  1. SYNTHROID [Suspect]
     Active Substance: LEVOTHYROXINE SODIUM
     Indication: Product used for unknown indication
     Route: 048

REACTIONS (8)
  - Dry mouth [Recovered/Resolved]
  - Taste disorder [Recovered/Resolved]
  - Chest pain [Recovered/Resolved]
  - Vulvovaginal dryness [Recovered/Resolved]
  - Diarrhoea [Recovered/Resolved]
  - Blood thyroid stimulating hormone increased [Not Recovered/Not Resolved]
  - Loss of libido [Recovered/Resolved]
  - Arthralgia [Recovered/Resolved]
